FAERS Safety Report 22658155 (Version 1)
Quarter: 2023Q2

REPORT INFORMATION
  Report Type: Spontaneous
  Country: US (occurrence: None)
  Receive Date: 20230630
  Receipt Date: 20230630
  Transmission Date: 20230722
  Serious: Yes (Death)
  Sender: FDA-Public Use
  Company Number: US-ROCHE-3379464

PATIENT
  Sex: Male

DRUGS (1)
  1. TNKASE [Suspect]
     Active Substance: TENECTEPLASE
     Indication: Cerebrovascular accident
     Route: 065

REACTIONS (4)
  - Cerebral haemorrhage [Fatal]
  - Brain oedema [Fatal]
  - Cerebrovascular accident [Fatal]
  - Off label use [Unknown]
